FAERS Safety Report 5583742-4 (Version None)
Quarter: 2008Q1

REPORT INFORMATION
  Report Type: 
  Country: None (occurrence: None)
  Receive Date: 20080102
  Receipt Date: 20071205
  Transmission Date: 20080703
  Serious: Yes (Other)
  Sender: FDA-Public Use
  Company Number: ENT 2007-0230

PATIENT
  Age: 72 Year
  Sex: Female

DRUGS (6)
  1. COMTAN [Suspect]
     Indication: DRUG EFFECT DECREASED
     Route: 048
  2. MYSLEE [Concomitant]
  3. MASHI-NIN-GAN [Concomitant]
  4. MENESIT [Concomitant]
  5. FP [Concomitant]
  6. PRAMIPEXOLE DIHYDROCHLORIDE [Concomitant]

REACTIONS (2)
  - HALLUCINATION [None]
  - HYPERKINESIA [None]
